FAERS Safety Report 6271297-0 (Version None)
Quarter: 2009Q3

REPORT INFORMATION
  Report Type: 
  Country: None (occurrence: None)
  Receive Date: 20090716
  Receipt Date: 20090716
  Transmission Date: 20100115
  Serious: Yes (Disabling)
  Sender: FDA-Public Use
  Company Number: None

PATIENT
  Sex: Male
  Weight: 25.4014 kg

DRUGS (1)
  1. SINGULAIR [Suspect]
     Indication: ASTHMA
     Dosage: 4 MG - 30 TABLETS 1 TABLET A DAY
     Dates: start: 20090519, end: 20090624

REACTIONS (2)
  - CYANOPSIA [None]
  - EYE ROLLING [None]
